FAERS Safety Report 7584461-5 (Version None)
Quarter: 2011Q2

REPORT INFORMATION
  Report Type: 
  Country: None (occurrence: None)
  Receive Date: 20110630
  Receipt Date: 20110623
  Transmission Date: 20111010
  Serious: Yes (Death)
  Sender: FDA-Public Use
  Company Number: GB-ABBOTT-11P-167-0734701-00

PATIENT
  Age: 80 Year
  Sex: Male

DRUGS (4)
  1. VALPROATE SODIUM [Suspect]
     Indication: STATUS EPILEPTICUS
     Route: 065
  2. PHENYTOIN [Suspect]
     Indication: STATUS EPILEPTICUS
  3. BENZODIAZEPINE DERIVATIVES [Suspect]
     Indication: STATUS EPILEPTICUS
     Route: 065
  4. KEPPRA [Suspect]
     Indication: STATUS EPILEPTICUS
     Route: 065

REACTIONS (1)
  - STATUS EPILEPTICUS [None]
